FAERS Safety Report 15646710 (Version 1)
Quarter: 2018Q4

REPORT INFORMATION
  Report Type: Spontaneous
  Country: US (occurrence: US)
  Receive Date: 20181122
  Receipt Date: 20181122
  Transmission Date: 20190205
  Serious: No
  Sender: FDA-Public Use
  Company Number: US-ESPERO PHARMACEUTICALS-ESP201801-000005

PATIENT
  Age: 73 Year
  Sex: Male

DRUGS (8)
  1. VALSARTAN AND HYDROCHLOROTHIAZIDE [Concomitant]
     Active Substance: HYDROCHLOROTHIAZIDE\VALSARTAN
  2. ASPIRIN. [Concomitant]
     Active Substance: ASPIRIN
  3. NITROLINGUAL PUMPSPRAY [Suspect]
     Active Substance: NITROGLYCERIN
     Indication: CARDIOVASCULAR EVENT PROPHYLAXIS
  4. PROTONIX [Concomitant]
     Active Substance: PANTOPRAZOLE SODIUM
  5. EPIPEN [Concomitant]
     Active Substance: EPINEPHRINE
  6. LOPRESSOR [Concomitant]
     Active Substance: METOPROLOL TARTRATE
  7. ZETIA [Concomitant]
     Active Substance: EZETIMIBE
  8. POTASSIUM [Concomitant]
     Active Substance: POTASSIUM
     Indication: CARDIAC DISORDER

REACTIONS (2)
  - Feeling abnormal [Recovered/Resolved]
  - Chest discomfort [Unknown]
